FAERS Safety Report 6206188-4 (Version None)
Quarter: 2009Q2

REPORT INFORMATION
  Report Type: 
  Country: None (occurrence: None)
  Receive Date: 20090528
  Receipt Date: 20081023
  Transmission Date: 20091009
  Serious: No
  Sender: FDA-Public Use
  Company Number: US-KINGPHARMUSA00001-K200801231

PATIENT
  Sex: Female
  Weight: 54.422 kg

DRUGS (4)
  1. AVINZA [Suspect]
     Indication: BLADDER PAIN
     Dosage: 90 MG, UNK
     Route: 048
     Dates: start: 20080901
  2. RITALIN [Concomitant]
     Dosage: 20 MG, UNK
  3. VALIUM [Concomitant]
  4. SODIUM BICARBONATE IN PLASTIC CONTAINER [Concomitant]
     Dosage: UNK, UNK

REACTIONS (1)
  - ABDOMINAL PAIN UPPER [None]
